FAERS Safety Report 5868770-3 (Version None)
Quarter: 2008Q3

REPORT INFORMATION
  Report Type: 
  Country: None (occurrence: None)
  Receive Date: 20080902
  Receipt Date: 20080902
  Transmission Date: 20090109
  Serious: Yes (Disabling)
  Sender: FDA-Public Use
  Company Number: None

PATIENT
  Age: 37 Year
  Sex: Female

DRUGS (1)
  1. ZOSYN [Suspect]
     Indication: ABDOMINAL WALL INFECTION
     Dosage: 3.375 MG Q6H IV
     Route: 042
     Dates: start: 20080703, end: 20080710

REACTIONS (1)
  - LEUKOPENIA [None]
